FAERS Safety Report 17831246 (Version 1)
Quarter: 2020Q3

REPORT INFORMATION
  Report Type: Report from Study
  Country: CD (occurrence: CD)
  Receive Date: 20200527
  Receipt Date: 20200527
  Transmission Date: 20201105
  Serious: Yes (Death)
  Sender: FDA-Public Use
  Company Number: CD-SA-2020SA127870

PATIENT
  Age: 55 Year
  Sex: Male

DRUGS (5)
  1. EFLORNITHINE HYDROCHLORIDE [Suspect]
     Active Substance: EFLORNITHINE HYDROCHLORIDE
     Indication: AFRICAN TRYPANOSOMIASIS
     Dosage: 400 MG/KG, QD
     Route: 065
     Dates: start: 20130503
  2. GLUCOSE + SODIUM CHLORIDE [Concomitant]
     Active Substance: DEXTROSE\SODIUM CHLORIDE
     Dosage: 5/0.9 %
     Route: 065
     Dates: start: 20130429
  3. EFLORNITHINE HYDROCHLORIDE [Suspect]
     Active Substance: EFLORNITHINE HYDROCHLORIDE
     Dosage: 7 DAYS
     Route: 065
  4. NIFURTIMOX. [Suspect]
     Active Substance: NIFURTIMOX
     Indication: AFRICAN TRYPANOSOMIASIS
     Dosage: 15 MG/KG, QD
     Route: 065
     Dates: start: 20130503, end: 20130512
  5. GLUCOSE + SODIUM CHLORIDE [Concomitant]
     Active Substance: DEXTROSE\SODIUM CHLORIDE
     Indication: PARENTERAL NUTRITION
     Dosage: 5/0.9 %
     Route: 065
     Dates: start: 20130427

REACTIONS (1)
  - Hypoglycaemia [Fatal]

NARRATIVE: CASE EVENT DATE: 20130521
